FAERS Safety Report 16030166 (Version 1)
Quarter: 2019Q2

REPORT INFORMATION
  Report Type: Spontaneous
  Country: US (occurrence: US)
  Receive Date: 20190304
  Receipt Date: 20190304
  Transmission Date: 20190711
  Serious: Yes (Life-Threatening, Hospitalization, Other)
  Sender: FDA-Public Use
  Company Number: None

PATIENT
  Age: 45 Year
  Sex: Male
  Weight: 99 kg

DRUGS (7)
  1. METPHORMINE [Concomitant]
  2. B2 [Concomitant]
  3. COQ10 [Concomitant]
     Active Substance: UBIDECARENONE
  4. BAYER [Concomitant]
     Active Substance: ASPIRIN
  5. MAG OXIDE [Concomitant]
     Active Substance: MAGNESIUM OXIDE
  6. LOSARTAN POTASSIUM. [Suspect]
     Active Substance: LOSARTAN POTASSIUM
     Indication: HYPERTENSION
     Dosage: ?          QUANTITY:90 TABLET(S);?
     Route: 048
     Dates: start: 20181109, end: 20181215
  7. ATORVASTATIN [Concomitant]
     Active Substance: ATORVASTATIN

REACTIONS (5)
  - Migraine [None]
  - Dizziness [None]
  - Hypertension [None]
  - Vertigo [None]
  - Headache [None]

NARRATIVE: CASE EVENT DATE: 20181215
